FAERS Safety Report 20906532 (Version 1)
Quarter: 2022Q2

REPORT INFORMATION
  Report Type: Spontaneous
  Country: US (occurrence: None)
  Receive Date: 20220602
  Receipt Date: 20220602
  Transmission Date: 20220721
  Serious: No
  Sender: FDA-Public Use
  Company Number: None

PATIENT
  Age: 65 Year
  Sex: Female

DRUGS (1)
  1. LISINOPRIL [Suspect]
     Active Substance: LISINOPRIL
     Indication: Hypertension
     Dosage: 2.5 MG EVERY DAY PO?
     Route: 048
     Dates: start: 20211207, end: 20220126

REACTIONS (5)
  - Angioedema [None]
  - Swelling face [None]
  - Lip swelling [None]
  - Dysphagia [None]
  - Speech disorder [None]

NARRATIVE: CASE EVENT DATE: 20220126
